FAERS Safety Report 8902694 (Version 2)
Quarter: 2013Q2

REPORT INFORMATION
  Report Type: Spontaneous
  Country: US (occurrence: US)
  Receive Date: 20121112
  Receipt Date: 20130510
  Transmission Date: 20140414
  Serious: No
  Sender: FDA-Public Use
  Company Number: US-009507513-1211USA004664

PATIENT
  Age: 43 Year
  Sex: Female
  Weight: 68.27 kg

DRUGS (4)
  1. AZASITE [Suspect]
     Indication: CONJUNCTIVITIS
     Dosage: 2 DROPS IN BOTH EYES, BID, FOR 2 DAYS AND 1 DROP IN EACH EYE FOR FOLLOWING 5 DAYS
     Route: 047
     Dates: start: 20121105, end: 20121111
  2. LOESTRIN [Concomitant]
  3. LEXAPRO [Concomitant]
  4. ZYRTEC [Concomitant]

REACTIONS (2)
  - Eye irritation [Recovering/Resolving]
  - Overdose [Unknown]
